FAERS Safety Report 6251817-2 (Version None)
Quarter: 2009Q2

REPORT INFORMATION
  Report Type: 
  Country: None (occurrence: None)
  Receive Date: 20090629
  Receipt Date: 20090616
  Transmission Date: 20091009
  Serious: Yes (Disabling)
  Sender: FDA-Public Use
  Company Number: 2009AL004059

PATIENT
  Age: 49 Year
  Sex: Male

DRUGS (3)
  1. ACYCLOVIR [Suspect]
     Indication: HERPES ZOSTER
     Dosage: 800 MG; Q5H; PO
     Route: 048
     Dates: start: 20090505
  2. PERINDOPRIL [Concomitant]
  3. SIMVASTATIN [Concomitant]

REACTIONS (3)
  - DELUSION [None]
  - HALLUCINATION, VISUAL [None]
  - PSYCHOTIC DISORDER [None]
